FAERS Safety Report 19500237 (Version 1)
Quarter: 2021Q3

REPORT INFORMATION
  Report Type: Spontaneous
  Country: US (occurrence: US)
  Receive Date: 20210707
  Receipt Date: 20210707
  Transmission Date: 20211014
  Serious: Yes (Other)
  Sender: FDA-Public Use
  Company Number: US-SA-2021SA220627

PATIENT
  Age: 72 Year
  Sex: Male

DRUGS (2)
  1. ZANTAC [Suspect]
     Active Substance: RANITIDINE HYDROCHLORIDE
     Indication: DYSPEPSIA
     Dosage: 25 MG, FREQUENCY: OTHER
     Dates: start: 198801
  2. ZANTAC [Suspect]
     Active Substance: RANITIDINE HYDROCHLORIDE
     Dosage: 75 MG, FREQUENCY: OTHER
     Dates: end: 201401

REACTIONS (3)
  - Papilloma viral infection [Unknown]
  - Gastric cancer [Unknown]
  - Appendix cancer [Unknown]
